FAERS Safety Report 21556090 (Version 1)
Quarter: 2022Q4

REPORT INFORMATION
  Report Type: Spontaneous
  Country: CN (occurrence: None)
  Receive Date: 20221104
  Receipt Date: 20221104
  Transmission Date: 20230112
  Serious: Yes (Hospitalization, Other)
  Sender: FDA-Public Use
  Company Number: 2022A362026

PATIENT
  Age: 81 Year
  Sex: Female
  Weight: 40 kg

DRUGS (1)
  1. DAPAGLIFLOZIN [Suspect]
     Active Substance: DAPAGLIFLOZIN
     Indication: Cardiac failure
     Route: 048
     Dates: start: 20221008, end: 20221016

REACTIONS (2)
  - Escherichia sepsis [Recovering/Resolving]
  - Fungal urethritis [Recovering/Resolving]
